FAERS Safety Report 24962643 (Version 1)
Quarter: 2025Q1

REPORT INFORMATION
  Report Type: Spontaneous
  Country: GR (occurrence: GR)
  Receive Date: 20250212
  Receipt Date: 20250212
  Transmission Date: 20250408
  Serious: Yes (Other)
  Sender: ORGANON
  Company Number: None

PATIENT
  Age: 73 Year
  Sex: Female

DRUGS (4)
  1. EZETIMIBE [Suspect]
     Active Substance: EZETIMIBE
  2. SIMVASTATIN [Suspect]
     Active Substance: SIMVASTATIN
  3. LIPITOR [Suspect]
     Active Substance: ATORVASTATIN CALCIUM
  4. CRESTOR [Suspect]
     Active Substance: ROSUVASTATIN CALCIUM

REACTIONS (3)
  - Pruritus [Recovered/Resolved]
  - Dysphoria [Recovered/Resolved]
  - Erythema [Recovered/Resolved]
